FAERS Safety Report 5308510-X (Version None)
Quarter: 2007Q2

REPORT INFORMATION
  Report Type: 
  Country: None (occurrence: None)
  Receive Date: 20070426
  Receipt Date: 20070418
  Transmission Date: 20071010
  Serious: Yes (Hospitalization)
  Sender: FDA-Public Use
  Company Number: US-AVENTIS-200711895EU

PATIENT
  Age: 60 Year
  Sex: Female

DRUGS (2)
  1. LASIX [Suspect]
  2. LOVENOX [Suspect]

REACTIONS (2)
  - LOWER GASTROINTESTINAL HAEMORRHAGE [None]
  - SYNCOPE [None]
